FAERS Safety Report 9985201 (Version 1)
Quarter: 2014Q1

REPORT INFORMATION
  Report Type: Report from Study
  Country: US (occurrence: US)
  Receive Date: 20140307
  Receipt Date: 20140307
  Transmission Date: 20141002
  Serious: No
  Sender: FDA-Public Use
  Company Number: US-ABBVIE-13P-163-1184640-00

PATIENT
  Age: 66 Year
  Sex: Male

DRUGS (6)
  1. HUMIRA [Suspect]
     Indication: CROHN^S DISEASE
     Dates: start: 20131212, end: 20131212
  2. HUMIRA [Suspect]
  3. METFORMIN [Concomitant]
     Indication: DIABETES MELLITUS
  4. APRISO [Concomitant]
     Indication: CROHN^S DISEASE
  5. PRAVASTATIN [Concomitant]
     Indication: BLOOD CHOLESTEROL INCREASED
  6. LEVEMIR [Concomitant]
     Indication: DIABETES MELLITUS
     Dosage: AT BEDTIME
     Route: 058

REACTIONS (2)
  - Skin odour abnormal [Not Recovered/Not Resolved]
  - Injection site pain [Not Recovered/Not Resolved]
